FAERS Safety Report 9457321 (Version 1)
Quarter: 2013Q3

REPORT INFORMATION
  Report Type: Spontaneous
  Country: FR (occurrence: None)
  Receive Date: 20130812
  Receipt Date: 20130812
  Transmission Date: 20140515
  Serious: Yes (Hospitalization)
  Sender: FDA-Public Use
  Company Number: 2013000188

PATIENT
  Age: 74 Year
  Sex: Male

DRUGS (5)
  1. ACEON [Suspect]
     Route: 048
     Dates: end: 20120713
  2. STAGID (METFORMIN EMBONATE) [Suspect]
     Route: 048
     Dates: end: 20130713
  3. AMLODIPINE (AMLODIPINE) [Suspect]
     Route: 048
     Dates: end: 20130713
  4. KARDEGIC (ACETYLSALICYLATE LYSINE) [Concomitant]
  5. SIMVASTATIN (SIMVASTATIN) [Concomitant]

REACTIONS (5)
  - Circulatory collapse [None]
  - Dehydration [None]
  - Urinary tract infection [None]
  - Renal failure acute [None]
  - Metabolic acidosis [None]
